FAERS Safety Report 5003462-4 (Version None)
Quarter: 2006Q2

REPORT INFORMATION
  Report Type: 
  Country: None (occurrence: None)
  Receive Date: 20060512
  Receipt Date: 20060504
  Transmission Date: 20061013
  Serious: Yes (Other)
  Sender: FDA-Public Use
  Company Number: S06-USA-01530-01

PATIENT
  Age: 39 Year
  Sex: Male

DRUGS (1)
  1. LEXAPRO [Suspect]
     Indication: DEPRESSION
     Dosage: 10 MG QD PO
     Route: 048
     Dates: start: 20021101

REACTIONS (3)
  - CATARACT [None]
  - EYE DISORDER [None]
  - SOMNOLENCE [None]
